FAERS Safety Report 4394489-4 (Version None)
Quarter: 2004Q3

REPORT INFORMATION
  Report Type: 
  Country: None (occurrence: None)
  Receive Date: 20040706
  Receipt Date: 20040618
  Transmission Date: 20050211
  Serious: Yes (Other)
  Sender: FDA-Public Use
  Company Number: USA040670554

PATIENT
  Age: 87 Year
  Sex: Male

DRUGS (7)
  1. ZYPREXA [Suspect]
     Indication: THINKING ABNORMAL
     Dosage: 5 MG DAY
     Dates: start: 19990101, end: 20040601
  2. MYLANTA [Concomitant]
  3. ASPIRIN ENTERIC COATED K.P. (ACETYLALICYLIC ACID) [Concomitant]
  4. ROCEPHIN [Concomitant]
  5. CITALOPRAM [Concomitant]
  6. LEVAQUIN [Concomitant]
  7. DIPHTHERIA AND TETANUS VACCINE (DIPHTHERIA AND TETANUS TOXOIDS) [Concomitant]

REACTIONS (14)
  - ANXIETY [None]
  - ATRIAL FIBRILLATION [None]
  - BENIGN PROSTATIC HYPERPLASIA [None]
  - CARDIAC FAILURE CONGESTIVE [None]
  - CHRONIC OBSTRUCTIVE AIRWAYS DISEASE [None]
  - CONSTIPATION [None]
  - ESSENTIAL HYPERTENSION [None]
  - GASTROOESOPHAGEAL REFLUX DISEASE [None]
  - INSOMNIA [None]
  - MUSCLE CRAMP [None]
  - PAIN [None]
  - PULMONARY HYPERTENSION [None]
  - SKIN ULCER [None]
  - WEIGHT DECREASED [None]
